FAERS Safety Report 9009595 (Version 2)
Quarter: 2013Q1

REPORT INFORMATION
  Report Type: Spontaneous
  Country: IT (occurrence: IT)
  Receive Date: 20130110
  Receipt Date: 20130125
  Transmission Date: 20140127
  Serious: Yes (Hospitalization)
  Sender: FDA-Public Use
  Company Number: PHHY2013IT002059

PATIENT
  Sex: Male

DRUGS (3)
  1. VOLTAREN [Suspect]
     Indication: INTERVERTEBRAL DISC PROTRUSION
     Dosage: 1 DF DAILY
     Route: 048
     Dates: start: 20120310, end: 20120313
  2. BRUFEN ^ABBOTT^ [Suspect]
     Indication: INTERVERTEBRAL DISC PROTRUSION
     Dosage: 3 DF DAILY
     Route: 048
     Dates: start: 20120310, end: 20120313
  3. MUSCORIL [Suspect]
     Indication: INTERVERTEBRAL DISC PROTRUSION
     Dosage: UNK UKN, UNK
     Dates: start: 20120310, end: 20120313

REACTIONS (4)
  - Oesophageal varices haemorrhage [Recovering/Resolving]
  - Abdominal pain upper [Recovering/Resolving]
  - Shock haemorrhagic [Recovering/Resolving]
  - Melaena [Recovering/Resolving]
